FAERS Safety Report 5053935-3 (Version None)
Quarter: 2006Q2

REPORT INFORMATION
  Report Type: 
  Country: None (occurrence: None)
  Receive Date: 20060614
  Receipt Date: 20060329
  Transmission Date: 20061013
  Serious: Yes (Other)
  Sender: FDA-Public Use
  Company Number: 442615

PATIENT
  Age: 87 Year
  Sex: Female

DRUGS (1)
  1. BONIVA [Suspect]
     Indication: OSTEOPOROSIS POSTMENOPAUSAL
     Dosage: 1 PER MOUTH ORAL
     Route: 048
     Dates: start: 20060328, end: 20060328

REACTIONS (1)
  - PRURITUS [None]
